FAERS Safety Report 6546925-2 (Version None)
Quarter: 2010Q1

REPORT INFORMATION
  Report Type: 
  Country: None (occurrence: None)
  Receive Date: 20100122
  Receipt Date: 20091228
  Transmission Date: 20100710
  Serious: Yes (Other)
  Sender: FDA-Public Use
  Company Number: IT-ABBOTT-10P-083-0620780-00

PATIENT
  Age: 21 Year
  Sex: Male
  Weight: 120 kg

DRUGS (6)
  1. DEPAKENE [Suspect]
     Indication: SELF INJURIOUS BEHAVIOUR
     Route: 048
     Dates: start: 20091015, end: 20091015
  2. DEPAKENE [Suspect]
     Route: 048
     Dates: end: 20091014
  3. AKINETON [Suspect]
     Indication: SELF INJURIOUS BEHAVIOUR
     Route: 048
     Dates: start: 20091015, end: 20091015
  4. AKINETON [Suspect]
     Route: 048
     Dates: end: 20091014
  5. RISPERDAL [Suspect]
     Indication: SELF INJURIOUS BEHAVIOUR
     Route: 048
     Dates: start: 20091015, end: 20091015
  6. RISPERDAL [Suspect]
     Route: 048
     Dates: end: 20091014

REACTIONS (1)
  - INTENTIONAL DRUG MISUSE [None]
